FAERS Safety Report 9739724 (Version 4)
Quarter: 2013Q4

REPORT INFORMATION
  Report Type: Spontaneous
  Country: US (occurrence: US)
  Receive Date: 20131209
  Receipt Date: 20131224
  Transmission Date: 20140711
  Serious: Yes (Other)
  Sender: FDA-Public Use
  Company Number: US-JNJFOC-20131201829

PATIENT
  Sex: Female

DRUGS (1)
  1. REMICADE [Suspect]
     Indication: RHEUMATOID ARTHRITIS
     Dosage: FOR APPROXIMATELY 2-5 YEARS
     Route: 042

REACTIONS (3)
  - Anal squamous cell carcinoma [Unknown]
  - Squamous cell carcinoma of the vulva [Unknown]
  - Human papilloma virus test positive [Unknown]
